FAERS Safety Report 6956861-5 (Version None)
Quarter: 2010Q3

REPORT INFORMATION
  Report Type: 
  Country: None (occurrence: None)
  Receive Date: 20100830
  Receipt Date: 20100826
  Transmission Date: 20110219
  Serious: Yes (Hospitalization)
  Sender: FDA-Public Use
  Company Number: FR-MERCK-1005FRA00050

PATIENT
  Age: 80 Year
  Sex: Male

DRUGS (11)
  1. SINGULAIR [Suspect]
     Route: 048
     Dates: end: 20100218
  2. SINGULAIR [Suspect]
     Route: 048
     Dates: start: 20100301
  3. PRIMIDONE [Suspect]
     Indication: ESSENTIAL TREMOR
     Route: 048
     Dates: end: 20100218
  4. BUDESONIDE AND FORMOTEROL FUMARATE [Suspect]
     Route: 055
     Dates: end: 20100218
  5. BUDESONIDE AND FORMOTEROL FUMARATE [Suspect]
     Route: 055
     Dates: start: 20100301
  6. PIPEMIDIC ACID [Concomitant]
     Route: 048
     Dates: start: 20100211, end: 20100218
  7. NICARDIPINE HYDROCHLORIDE [Concomitant]
     Route: 065
     Dates: start: 20100218, end: 20100222
  8. URAPIDIL [Concomitant]
     Route: 065
     Dates: start: 20100219, end: 20100301
  9. ESOMEPRAZOLE MAGNESIUM [Concomitant]
     Route: 065
     Dates: start: 20100219
  10. AMIODARONE HYDROCHLORIDE [Concomitant]
     Route: 065
     Dates: start: 20100219
  11. HEPARIN CALCIUM [Concomitant]
     Route: 065
     Dates: start: 20100219, end: 20100220

REACTIONS (2)
  - AGITATION [None]
  - PERSECUTORY DELUSION [None]
